FAERS Safety Report 17631583 (Version 5)
Quarter: 2020Q2

REPORT INFORMATION
  Report Type: Spontaneous
  Country: JP (occurrence: JP)
  Receive Date: 20200406
  Receipt Date: 20200626
  Transmission Date: 20200713
  Serious: Yes (Hospitalization)
  Sender: FDA-Public Use
  Company Number: JP-AMGEN-JPNSP2020054003

PATIENT
  Age: 52 Year
  Sex: Male
  Weight: 103.5 kg

DRUGS (10)
  1. PARSABIV [Suspect]
     Active Substance: ETELCALCETIDE HYDROCHLORIDE
     Dosage: 12.5 MILLIGRAM, 3 TIMES/WK
     Route: 010
     Dates: start: 20191220, end: 20200114
  2. RIONA [Concomitant]
     Active Substance: FERRIC CITRATE ANHYDROUS
     Dosage: 1500 MILLIGRAM, QD
     Route: 048
     Dates: start: 20181107
  3. PRECIPITATED CALCIUM CARBONATE [Concomitant]
     Active Substance: CALCIUM CARBONATE
     Dosage: 1500 MILLIGRAM, QD
     Route: 048
  4. LANTHANUM CARBONATE. [Concomitant]
     Active Substance: LANTHANUM CARBONATE
     Dosage: 1000 MILLIGRAM, QD
     Route: 048
  5. OXAROL [Concomitant]
     Active Substance: MAXACALCITOL
     Dosage: 5 MICROGRAM, 3 TIMES/WK
     Route: 065
  6. INSULIN [Concomitant]
     Active Substance: INSULIN NOS
     Dosage: UNK
     Route: 065
  7. ALFAROL [Concomitant]
     Active Substance: ALFACALCIDOL
     Dosage: 0.5 MICROGRAM, 3 TIMES/WK
     Route: 048
  8. PARSABIV [Suspect]
     Active Substance: ETELCALCETIDE HYDROCHLORIDE
     Indication: HYPERPARATHYROIDISM SECONDARY
     Dosage: 10 MILLIGRAM, 3 TIMES/WK
     Route: 010
     Dates: start: 20191130, end: 20191218
  9. LANSOPRAZOLE. [Concomitant]
     Active Substance: LANSOPRAZOLE
     Dosage: 15 MILLIGRAM, QD
     Route: 048
  10. PARSABIV [Suspect]
     Active Substance: ETELCALCETIDE HYDROCHLORIDE
     Dosage: 15 MILLIGRAM, 3 TIMES/WK
     Route: 010
     Dates: start: 20200116, end: 20200204

REACTIONS (1)
  - Hyperparathyroidism secondary [Recovering/Resolving]

NARRATIVE: CASE EVENT DATE: 20200212
